FAERS Safety Report 4302211-2 (Version None)
Quarter: 2004Q1

REPORT INFORMATION
  Report Type: 
  Country: None (occurrence: None)
  Receive Date: 20040220
  Receipt Date: 20040209
  Transmission Date: 20041129
  Serious: Yes (Death, Hospitalization)
  Sender: FDA-Public Use
  Company Number: 2004007843

PATIENT
  Age: 36 Year
  Sex: Female

DRUGS (2)
  1. ZITHROMAX [Suspect]
     Indication: PNEUMONIA
     Dosage: 500 MG (ONCE), INTRAVENOUS
     Route: 042
     Dates: start: 20040208, end: 20040208
  2. PIP/TAZO (PIPERACILLIN SODIUM, TAZOBACTAM SODIUM) [Concomitant]

REACTIONS (2)
  - CARDIAC ARREST [None]
  - SQUAMOUS CELL CARCINOMA [None]
